FAERS Safety Report 6698179-4 (Version None)
Quarter: 2010Q2

REPORT INFORMATION
  Report Type: 
  Country: None (occurrence: None)
  Receive Date: 20100427
  Receipt Date: 20100415
  Transmission Date: 20101027
  Serious: Yes (Hospitalization)
  Sender: FDA-Public Use
  Company Number: FR-PFIZER INC-2010051113

PATIENT
  Age: 72 Year
  Sex: Male

DRUGS (2)
  1. ATARAX [Suspect]
     Dosage: 25 MG SINGLE
     Route: 048
     Dates: start: 20100225
  2. ATARAX [Suspect]
     Dosage: 25 MG, SINGLE
     Dates: start: 20100227

REACTIONS (1)
  - RESPIRATORY DISTRESS [None]
